FAERS Safety Report 5113114-8 (Version None)
Quarter: 2006Q3

REPORT INFORMATION
  Report Type: 
  Country: None (occurrence: None)
  Receive Date: 20060731
  Receipt Date: 20060628
  Transmission Date: 20061208
  Serious: No
  Sender: FDA-Public Use
  Company Number: 2006PV016614

PATIENT
  Age: 61 Year
  Sex: Female

DRUGS (17)
  1. BYETTA [Suspect]
     Indication: DIABETES MELLITUS NON-INSULIN-DEPENDENT
     Dosage: SEE IMAGE
     Route: 058
     Dates: start: 20060501, end: 20060610
  2. BYETTA [Suspect]
     Indication: DIABETES MELLITUS NON-INSULIN-DEPENDENT
     Dosage: SEE IMAGE
     Route: 058
     Dates: start: 20060611
  3. METFORMIN HCL [Concomitant]
  4. LANTUS [Concomitant]
  5. CALCIUM WITH VITAMIN D [Concomitant]
  6. MAGNESIUM [Concomitant]
  7. ASCORBIC ACID [Concomitant]
  8. VITAMIN E [Concomitant]
  9. POTASSIUM CHLORIDE [Concomitant]
  10. FUROSEMIDE [Concomitant]
  11. PROTONIX [Concomitant]
  12. VITAMIN B-12 [Concomitant]
  13. CHROMIUM PICOLINATE [Concomitant]
  14. FLEXAMIN [Concomitant]
  15. ADVANCED OMEGA 3 [Concomitant]
  16. PHYTOX COMPLEX [Concomitant]
  17. ASCORBIC ACID [Concomitant]

REACTIONS (8)
  - ABDOMINAL DISTENSION [None]
  - ARTHRALGIA [None]
  - FALL [None]
  - FATIGUE [None]
  - LOWER LIMB FRACTURE [None]
  - MUSCLE SPASMS [None]
  - PYREXIA [None]
  - WEIGHT INCREASED [None]
